FAERS Safety Report 10227834 (Version 1)
Quarter: 2014Q2

REPORT INFORMATION
  Report Type: Spontaneous
  Country: US (occurrence: None)
  Receive Date: 20140609
  Receipt Date: 20140609
  Transmission Date: 20141212
  Serious: Yes (Hospitalization)
  Sender: FDA-Public Use
  Company Number: None

PATIENT
  Age: 69 Year
  Sex: Female
  Weight: 80.6 kg

DRUGS (2)
  1. CARBOPLATIN [Suspect]
  2. PACLITAXEL (TAXOL) [Suspect]
     Dosage: WAS DOSE REDUCED TO 135MG/M2 DUE TO NEUROPATHY THIS LAS CYCLE

REACTIONS (3)
  - Atrial flutter [None]
  - Atrial fibrillation [None]
  - Atrioventricular block [None]
